FAERS Safety Report 10284974 (Version 5)
Quarter: 2016Q3

REPORT INFORMATION
  Report Type: Report from Study
  Country: US (occurrence: US)
  Receive Date: 20140708
  Receipt Date: 20160705
  Transmission Date: 20161109
  Serious: Yes (Other)
  Sender: FDA-Public Use
  Company Number: US-SA-2014SA087830

PATIENT
  Age: 63 Year
  Sex: Female

DRUGS (1)
  1. AUBAGIO [Suspect]
     Active Substance: TERIFLUNOMIDE
     Indication: MULTIPLE SCLEROSIS
     Route: 048
     Dates: start: 20130325

REACTIONS (9)
  - Back pain [Unknown]
  - Arthralgia [Unknown]
  - Decreased appetite [Unknown]
  - Impaired gastric emptying [Unknown]
  - Gait disturbance [Unknown]
  - Orthosis user [Unknown]
  - Urinary tract infection [Unknown]
  - Confusional state [Not Recovered/Not Resolved]
  - Memory impairment [Unknown]
